FAERS Safety Report 7002221-0 (Version None)
Quarter: 2010Q3

REPORT INFORMATION
  Report Type: 
  Country: None (occurrence: None)
  Receive Date: 20100920
  Receipt Date: 20100622
  Transmission Date: 20110219
  Serious: No
  Sender: FDA-Public Use
  Company Number: US-ASTRAZENECA-2007UW12856

PATIENT
  Age: 48 Year
  Sex: Male
  Weight: 99.8 kg

DRUGS (27)
  1. SEROQUEL [Suspect]
     Indication: SLEEP DISORDER
     Dosage: 25 MG TO 100 MG
     Route: 048
     Dates: start: 19971001
  2. SEROQUEL [Suspect]
     Indication: SCHIZOPHRENIA, PARANOID TYPE
     Dosage: 25 MG TO 100 MG
     Route: 048
     Dates: start: 19971001
  3. SEROQUEL [Suspect]
     Indication: DEPRESSION
     Dosage: 25 MG TO 100 MG
     Route: 048
     Dates: start: 19971001
  4. SEROQUEL [Suspect]
     Indication: INSOMNIA
     Dosage: 25 MG TO 100 MG
     Route: 048
     Dates: start: 19971001
  5. SEROQUEL [Suspect]
     Indication: SCHIZOPHRENIA
     Dosage: 25 MG TO 100 MG
     Route: 048
     Dates: start: 19971001
  6. SEROQUEL [Suspect]
     Dosage: 25-100 MG, AT NIGHT
     Route: 048
     Dates: start: 20010823
  7. SEROQUEL [Suspect]
     Dosage: 25-100 MG, AT NIGHT
     Route: 048
     Dates: start: 20010823
  8. SEROQUEL [Suspect]
     Dosage: 25-100 MG, AT NIGHT
     Route: 048
     Dates: start: 20010823
  9. SEROQUEL [Suspect]
     Dosage: 25-100 MG, AT NIGHT
     Route: 048
     Dates: start: 20010823
  10. SEROQUEL [Suspect]
     Dosage: 25-100 MG, AT NIGHT
     Route: 048
     Dates: start: 20010823
  11. RISPERDAL [Concomitant]
     Indication: SCHIZOPHRENIA, PARANOID TYPE
     Dates: start: 20010101
  12. RISPERDAL [Concomitant]
     Indication: DEPRESSION
     Dates: start: 20010101
  13. RISPERDAL [Concomitant]
     Indication: INSOMNIA
     Dates: start: 20010101
  14. RISPERDAL [Concomitant]
     Indication: SCHIZOPHRENIA
     Dates: start: 20010101
  15. GLIPIZIDE [Concomitant]
     Route: 048
     Dates: start: 20060314
  16. NORVASC [Concomitant]
     Indication: BLOOD PRESSURE
     Route: 048
     Dates: start: 20060308
  17. TRIAMTERENE W/HCTZ [Concomitant]
     Dosage: 50-75 MG, DAILY
     Route: 048
     Dates: start: 20060308
  18. TRAZODONE HCL [Concomitant]
     Indication: SCHIZOPHRENIA
  19. TRAZODONE HCL [Concomitant]
     Indication: DEPRESSION
  20. ABILIFY [Concomitant]
  21. HALDOL [Concomitant]
     Dates: start: 19780101, end: 19800101
  22. NAVANE [Concomitant]
  23. LEXAPRO [Concomitant]
     Dates: start: 20060101, end: 20090101
  24. PAXIL [Concomitant]
     Dates: start: 20010101
  25. TRILEPTAL [Concomitant]
     Dates: start: 20020101, end: 20060101
  26. TRILEPTAL [Concomitant]
     Route: 048
     Dates: start: 20040127
  27. XANAX [Concomitant]
     Indication: ANXIETY
     Dates: start: 20060101, end: 20080101

REACTIONS (10)
  - ARTHRITIS [None]
  - BACK PAIN [None]
  - BIOPSY LIVER [None]
  - DIABETES MELLITUS INADEQUATE CONTROL [None]
  - HYPERGLYCAEMIA [None]
  - HYPERTENSION [None]
  - MUSCULOSKELETAL PAIN [None]
  - OBESITY [None]
  - TYPE 2 DIABETES MELLITUS [None]
  - UTERINE DISORDER [None]
